FAERS Safety Report 26011028 (Version 1)
Quarter: 2025Q4

REPORT INFORMATION
  Report Type: Spontaneous
  Country: US (occurrence: None)
  Receive Date: 20251107
  Receipt Date: 20251107
  Transmission Date: 20260117
  Serious: Yes (Hospitalization)
  Sender: FDA-CTU
  Company Number: None

PATIENT
  Age: 79 Year
  Sex: Female

DRUGS (4)
  1. FLUOROURACIL [Suspect]
     Active Substance: FLUOROURACIL
     Dates: end: 20250619
  2. CAMPTOSAR [Suspect]
     Active Substance: IRINOTECAN HYDROCHLORIDE
     Dates: end: 20250319
  3. LEUCOVORIN CALCIUM [Suspect]
     Active Substance: LEUCOVORIN CALCIUM
     Dates: end: 20250619
  4. ELOXATIN [Suspect]
     Active Substance: OXALIPLATIN
     Dates: end: 20250619

REACTIONS (3)
  - Jaundice cholestatic [None]
  - Escherichia bacteraemia [None]
  - Platelet count decreased [None]

NARRATIVE: CASE EVENT DATE: 20251026
